FAERS Safety Report 8809449 (Version 1)
Quarter: 2012Q4

REPORT INFORMATION
  Report Type: 
  Country: US (occurrence: US)
  Receive Date: 20120926
  Receipt Date: 20120926
  Transmission Date: 20130627
  Serious: Yes (Hospitalization, Other)
  Sender: FDA-Public Use
  Company Number: US-ROCHE-1124209

PATIENT
  Age: 40 Year
  Sex: Female

DRUGS (15)
  1. HERCEPTIN [Suspect]
     Indication: BREAST CANCER METASTATIC
     Route: 065
     Dates: start: 201006
  2. HERCEPTIN [Suspect]
     Route: 065
     Dates: start: 20111024, end: 201111
  3. HERCEPTIN [Suspect]
     Route: 065
     Dates: start: 201112
  4. HERCEPTIN [Suspect]
     Route: 065
     Dates: start: 20120104
  5. HERCEPTIN [Suspect]
     Route: 065
     Dates: start: 20120613, end: 20120823
  6. XELODA [Suspect]
     Indication: BREAST CANCER METASTATIC
     Route: 065
     Dates: start: 201101
  7. PACLITAXEL [Suspect]
     Indication: BREAST CANCER METASTATIC
  8. CARBOPLATIN [Suspect]
     Indication: BREAST CANCER METASTATIC
     Route: 065
     Dates: end: 201006
  9. LAPATINIB [Suspect]
     Indication: BREAST CANCER METASTATIC
     Route: 065
     Dates: start: 20111024, end: 201111
  10. LAPATINIB [Suspect]
     Route: 065
     Dates: start: 20120613, end: 20120823
  11. AROMATASE INHIBITOR [Suspect]
     Indication: BREAST CANCER METASTATIC
     Route: 065
     Dates: start: 201006
  12. NAVELBINE [Suspect]
     Indication: BREAST CANCER METASTATIC
     Route: 065
     Dates: start: 20110616, end: 20110809
  13. ZOMETA [Suspect]
     Indication: BREAST CANCER METASTATIC
     Route: 065
     Dates: start: 20111024, end: 201111
  14. ERIBULIN [Suspect]
     Indication: BREAST CANCER METASTATIC
     Route: 065
     Dates: start: 20120613, end: 20120823
  15. ABRAXANE [Suspect]
     Indication: BREAST CANCER METASTATIC
     Route: 065
     Dates: start: 20120104

REACTIONS (10)
  - Brain oedema [Unknown]
  - Disease progression [Unknown]
  - Tumour marker increased [Unknown]
  - Asthenia [Unknown]
  - Aphasia [Unknown]
  - Incontinence [Unknown]
  - Dysgraphia [Unknown]
  - Dysarthria [Unknown]
  - Cognitive disorder [Unknown]
  - Nausea [Unknown]
